FAERS Safety Report 19124506 (Version 1)
Quarter: 2021Q2

REPORT INFORMATION
  Report Type: Report from Study
  Country: AU (occurrence: AU)
  Receive Date: 20210413
  Receipt Date: 20210413
  Transmission Date: 20210717
  Serious: Yes (Hospitalization)
  Sender: FDA-Public Use
  Company Number: AU-BRISTOL-MYERS SQUIBB COMPANY-BMS-2021-031498

PATIENT
  Age: 73 Year
  Sex: Male
  Weight: 86 kg

DRUGS (18)
  1. PLACEBO [Suspect]
     Active Substance: UNSPECIFIED INGREDIENT
     Dosage: 2 TAB
     Route: 065
     Dates: start: 20210311, end: 20210311
  2. NAPROSYN [Concomitant]
     Active Substance: NAPROXEN
     Indication: PRODUCT USED FOR UNKNOWN INDICATION
     Dosage: 500 MILLIGRAM
     Route: 048
     Dates: start: 20210307
  3. ENDONE [Concomitant]
     Active Substance: OXYCODONE HYDROCHLORIDE
     Indication: PRODUCT USED FOR UNKNOWN INDICATION
     Dosage: 5 MILLIGRAM
     Route: 048
     Dates: start: 20210307
  4. GEMCITABINE HYDROCHLORIDE. [Suspect]
     Active Substance: GEMCITABINE HYDROCHLORIDE
     Dosage: 2000 MILLIGRAM
     Route: 065
     Dates: start: 20201029, end: 20201029
  5. HIRUDOID [Concomitant]
     Active Substance: GLYCOSAMINOGLYCANS
     Indication: PRODUCT USED FOR UNKNOWN INDICATION
     Dosage: 1 DOSAGE FORM
     Route: 061
     Dates: start: 20200901
  6. MULTIVITAMINS [VITAMINS NOS] [Concomitant]
     Active Substance: VITAMINS
     Indication: PRODUCT USED FOR UNKNOWN INDICATION
     Dosage: 1 DOSAGE FORM
     Route: 048
     Dates: start: 20210207
  7. BLINDED LINRODOSTAT MESYLATE [Suspect]
     Active Substance: LINRODOSTAT MESYLATE
     Dosage: 2 TAB
     Route: 065
     Dates: start: 20210311, end: 20210311
  8. IBUPROFEN. [Concomitant]
     Active Substance: IBUPROFEN
     Indication: PRODUCT USED FOR UNKNOWN INDICATION
     Dosage: 400 MILLIGRAM
     Route: 048
     Dates: start: 20200901
  9. GEMCITABINE HYDROCHLORIDE. [Suspect]
     Active Substance: GEMCITABINE HYDROCHLORIDE
     Indication: BLADDER CANCER
     Dosage: 2000 MILLIGRAM
     Route: 065
     Dates: start: 20200820, end: 20200820
  10. NIVOLUMAB [Suspect]
     Active Substance: NIVOLUMAB
     Dosage: 480 MILLIGRAM
     Route: 065
     Dates: start: 20210311, end: 20210311
  11. TEMAZE [Concomitant]
     Active Substance: TEMAZEPAM
     Indication: PRODUCT USED FOR UNKNOWN INDICATION
     Dosage: 10 MILLIGRAM
     Route: 048
     Dates: start: 20200828
  12. METOCLOPRAMIDE. [Concomitant]
     Active Substance: METOCLOPRAMIDE
     Indication: PRODUCT USED FOR UNKNOWN INDICATION
     Dosage: 10 MILLIGRAM
     Route: 048
     Dates: start: 20200911
  13. BLINDED LINRODOSTAT MESYLATE [Suspect]
     Active Substance: LINRODOSTAT MESYLATE
     Indication: BLADDER CANCER
     Dosage: 1 TAB
     Route: 065
     Dates: start: 20200820, end: 20200820
  14. PLACEBO [Suspect]
     Active Substance: UNSPECIFIED INGREDIENT
     Indication: BLADDER CANCER
     Dosage: 1 TAB
     Route: 065
     Dates: start: 20200820, end: 20200820
  15. NIVOLUMAB [Suspect]
     Active Substance: NIVOLUMAB
     Indication: BLADDER CANCER
     Dosage: 360 MILLIGRAM
     Route: 065
     Dates: start: 20200820, end: 20200820
  16. CISPLATIN. [Suspect]
     Active Substance: CISPLATIN
     Indication: BLADDER CANCER
     Dosage: 105 MILLIGRAM
     Route: 065
     Dates: start: 20200820, end: 20200820
  17. CISPLATIN. [Suspect]
     Active Substance: CISPLATIN
     Dosage: 78 MILLIGRAM
     Route: 065
     Dates: start: 20201022, end: 20201022
  18. PANTOPRAZOLE [Concomitant]
     Active Substance: PANTOPRAZOLE
     Indication: PRODUCT USED FOR UNKNOWN INDICATION
     Dosage: 20 MILLIGRAM
     Route: 048
     Dates: start: 20200917

REACTIONS (1)
  - Enteritis [Recovered/Resolved]

NARRATIVE: CASE EVENT DATE: 20210327
